FAERS Safety Report 26098567 (Version 1)
Quarter: 2025Q4

REPORT INFORMATION
  Report Type: Report from Study
  Country: AR (occurrence: AR)
  Receive Date: 20251127
  Receipt Date: 20251127
  Transmission Date: 20260119
  Serious: Yes (Other)
  Sender: ABBVIE
  Company Number: AR-ABBVIE-6565339

PATIENT
  Age: 33 Year
  Sex: Female

DRUGS (1)
  1. RINVOQ [Suspect]
     Active Substance: UPADACITINIB
     Indication: Rheumatoid arthritis
     Route: 048
     Dates: start: 20250905, end: 202511

REACTIONS (1)
  - Gallbladder operation [Recovered/Resolved]

NARRATIVE: CASE EVENT DATE: 20251115
